FAERS Safety Report 21325582 (Version 1)
Quarter: 2022Q3

REPORT INFORMATION
  Report Type: Spontaneous
  Country: US (occurrence: None)
  Receive Date: 20220912
  Receipt Date: 20220912
  Transmission Date: 20221027
  Serious: No
  Sender: FDA-Public Use
  Company Number: None

PATIENT
  Sex: Male

DRUGS (1)
  1. MYCOPHENOLIC ACID [Suspect]
     Active Substance: MYCOPHENOLIC ACID
     Dosage: FREQUENCY : TWICE A DAY;?
     Route: 048
     Dates: start: 20190821

REACTIONS (7)
  - COVID-19 [None]
  - Therapy cessation [None]
  - Cerebrovascular accident [None]
  - Influenza [None]
  - Viral infection [None]
  - Hypertension [None]
  - Thrombosis [None]
